FAERS Safety Report 14798932 (Version 2)
Quarter: 2018Q2

REPORT INFORMATION
  Report Type: Report from Study
  Country: US (occurrence: US)
  Receive Date: 20180424
  Receipt Date: 20180504
  Transmission Date: 20180711
  Serious: No
  Sender: FDA-Public Use
  Company Number: US-ROCHE-2111646

PATIENT
  Sex: Female

DRUGS (1)
  1. OCREVUS [Suspect]
     Active Substance: OCRELIZUMAB
     Indication: MULTIPLE SCLEROSIS
     Dosage: DAY 1 AND 15
     Route: 042
     Dates: start: 201707

REACTIONS (4)
  - Upper respiratory tract infection [Unknown]
  - Rash [Unknown]
  - Condition aggravated [Unknown]
  - Infusion related reaction [Unknown]
